FAERS Safety Report 5287676-4 (Version None)
Quarter: 2007Q2

REPORT INFORMATION
  Report Type: 
  Country: None (occurrence: None)
  Receive Date: 20070405
  Receipt Date: 20070402
  Transmission Date: 20071010
  Serious: Yes (Hospitalization, Other)
  Sender: FDA-Public Use
  Company Number: US-BAYER-200615113BCC

PATIENT
  Age: 73 Year
  Sex: Male
  Weight: 68 kg

DRUGS (4)
  1. ASPIRIN TAB [Suspect]
     Indication: CARDIOVASCULAR EVENT PROPHYLAXIS
     Dosage: TOTAL DAILY DOSE: 81 MG  UNIT DOSE: 81 MG
     Route: 048
     Dates: start: 20020101
  2. BAYER BACK + BODY [Suspect]
     Indication: BACK PAIN
     Dosage: TOTAL DAILY DOSE: 1500 MG  UNIT DOSE: 500 MG
     Route: 048
     Dates: start: 20061001, end: 20061001
  3. DIOVAN [Concomitant]
     Route: 048
  4. LANOXIN [Concomitant]
     Route: 048

REACTIONS (3)
  - CARDIAC ARREST [None]
  - CHEST PAIN [None]
  - MYOCARDIAL INFARCTION [None]
